FAERS Safety Report 7600062-4 (Version None)
Quarter: 2011Q2

REPORT INFORMATION
  Report Type: 
  Country: None (occurrence: None)
  Receive Date: 20110629
  Receipt Date: 20110616
  Transmission Date: 20111010
  Serious: Yes (Life-Threatening, Hospitalization, Other)
  Sender: FDA-Public Use
  Company Number: 2011MA007671

PATIENT
  Age: 43 Year
  Sex: Male

DRUGS (6)
  1. VENLAFAXINE HYDROCHLORIDE [Suspect]
     Indication: DEPRESSION
     Dosage: 75 MG;QD; UNK
  2. LEVODOPA [Concomitant]
  3. BENZHEXOL [Concomitant]
  4. CARBIDOPA [Concomitant]
  5. AMANTADINE HCL [Concomitant]
  6. ROPINIROLE [Concomitant]

REACTIONS (17)
  - DELIRIUM [None]
  - MYDRIASIS [None]
  - PYREXIA [None]
  - AGITATION [None]
  - HYPERHIDROSIS [None]
  - FLUSHING [None]
  - CLONUS [None]
  - PNEUMONIA [None]
  - DYSPHAGIA [None]
  - SOMNOLENCE [None]
  - METABOLIC ACIDOSIS [None]
  - RHABDOMYOLYSIS [None]
  - SHOCK [None]
  - RENAL FAILURE ACUTE [None]
  - NEUROLEPTIC MALIGNANT SYNDROME [None]
  - HAEMODIALYSIS [None]
  - SEROTONIN SYNDROME [None]
